FAERS Safety Report 19685533 (Version 2)
Quarter: 2021Q4

REPORT INFORMATION
  Report Type: Other
  Country: US (occurrence: US)
  Receive Date: 20210811
  Receipt Date: 20211005
  Transmission Date: 20220303
  Serious: Yes (Hospitalization)
  Sender: FDA-Public Use
  Company Number: US-ROCHE-2886224

PATIENT
  Sex: Male

DRUGS (3)
  1. HEMLIBRA [Suspect]
     Active Substance: EMICIZUMAB-KXWH
     Indication: Hypoprothrombinaemia
     Dosage: INJECT 390MG (TWO FULL VIALS OF 150MG, ONE FULL 60MG VIAL, AND ONE FULL 30MG VIAL) SUBCUTANEOUSLY EV
     Route: 058
  2. HEMLIBRA [Suspect]
     Active Substance: EMICIZUMAB-KXWH
     Dosage: INJECT 390MG (TWO FULL VIALS OF 150MG, ONE FULL 60MG VIAL, AND ONE FULL 30MG VIAL) SUBCUTANEOUSLY EV
     Route: 058
  3. HEMLIBRA [Suspect]
     Active Substance: EMICIZUMAB-KXWH
     Dosage: INJECT 390MG (TWO FULL VIALS OF 150MG, ONE FULL 60MG VIAL, AND ONE FULL 30MG VIAL) SUBCUTANEOUSLY EV
     Route: 058

REACTIONS (4)
  - Terminal state [Unknown]
  - Anaemia [Unknown]
  - Haematuria [Unknown]
  - Off label use [Unknown]
